FAERS Safety Report 4673717-1 (Version None)
Quarter: 2005Q2

REPORT INFORMATION
  Report Type: 
  Country: None (occurrence: None)
  Receive Date: 20050523
  Receipt Date: 20050506
  Transmission Date: 20051028
  Serious: Yes (Hospitalization, Other)
  Sender: FDA-Public Use
  Company Number: 2005075560

PATIENT
  Age: 61 Year
  Sex: Female

DRUGS (1)
  1. DETROL LA [Suspect]
     Indication: ILL-DEFINED DISORDER
     Dosage: 4 MG (4 MG, 1 IN 1 D), UNKNOWN
     Route: 065
     Dates: start: 20050308, end: 20050315

REACTIONS (2)
  - BLADDER OBSTRUCTION [None]
  - OEDEMA PERIPHERAL [None]
